FAERS Safety Report 4636659-3 (Version None)
Quarter: 2005Q2

REPORT INFORMATION
  Report Type: 
  Country: None (occurrence: None)
  Receive Date: 20050414
  Receipt Date: 20050330
  Transmission Date: 20051028
  Serious: Yes (Hospitalization, Disabling)
  Sender: FDA-Public Use
  Company Number: 2005SE01901

PATIENT
  Age: 87 Year
  Sex: Female

DRUGS (10)
  1. FELODIPINE [Suspect]
     Indication: MYOCARDIAL ISCHAEMIA
     Dosage: 2.5 MG DAILY PO
     Route: 048
  2. RAMIPRIL [Suspect]
     Indication: CARDIAC FAILURE CONGESTIVE
     Dosage: 10 MG DAILY PO
     Route: 048
  3. RAMIPRIL [Suspect]
     Indication: MYOCARDIAL ISCHAEMIA
     Dosage: 10 MG DAILY PO
     Route: 048
  4. TRIAMIPRAMINE [Suspect]
     Indication: DEPRESSION
     Dosage: 75 MG DAILY
  5. THALIDOMIDE [Suspect]
     Indication: MULTIPLE MYELOMA
     Dosage: 100 MG DAILY PO
     Route: 048
     Dates: start: 20050312, end: 20050313
  6. FUROSEMIDE [Concomitant]
  7. PARACETAMOL [Concomitant]
  8. DEXAMETHASONE [Concomitant]
  9. ALLOPURINOL [Concomitant]
  10. PYRIDOXINE HCL [Concomitant]

REACTIONS (5)
  - CONVULSION [None]
  - CONVULSIVE THRESHOLD LOWERED [None]
  - DRUG INTERACTION [None]
  - HYPOTENSION [None]
  - VOMITING [None]
